FAERS Safety Report 24235534 (Version 3)
Quarter: 2025Q3

REPORT INFORMATION
  Report Type: Spontaneous
  Country: EU (occurrence: EU)
  Receive Date: 20240822
  Receipt Date: 20250704
  Transmission Date: 20251021
  Serious: Yes (Other)
  Sender: SANDOZ
  Company Number: EU-CELLTRION HEALTHCARE HUNGARY KFT-2023ES003199

PATIENT
  Age: 21 Year
  Sex: Male

DRUGS (12)
  1. ABATACEPT [Suspect]
     Active Substance: ABATACEPT
     Indication: Immunodeficiency common variable
     Route: 065
  2. ALEMTUZUMAB [Suspect]
     Active Substance: ALEMTUZUMAB
     Indication: Prophylaxis against graft versus host disease
     Route: 065
  3. CYCLOSPORINE [Suspect]
     Active Substance: CYCLOSPORINE
     Indication: Prophylaxis against transplant rejection
     Route: 065
  4. FLUDARABINE [Suspect]
     Active Substance: FLUDARABINE PHOSPHATE
     Indication: Allogenic stem cell transplantation
     Route: 065
  5. MYCOPHENOLATE MOFETIL [Suspect]
     Active Substance: MYCOPHENOLATE MOFETIL
     Indication: Immunodeficiency common variable
     Route: 065
  6. MYCOPHENOLATE MOFETIL [Suspect]
     Active Substance: MYCOPHENOLATE MOFETIL
     Indication: Prophylaxis against transplant rejection
  7. RITUXIMAB [Suspect]
     Active Substance: RITUXIMAB
     Indication: Immunodeficiency common variable
     Route: 065
  8. SIROLIMUS [Suspect]
     Active Substance: SIROLIMUS
     Indication: Immunodeficiency common variable
     Route: 065
  9. SIROLIMUS [Suspect]
     Active Substance: SIROLIMUS
     Indication: Prophylaxis against transplant rejection
  10. THIOTEPA [Suspect]
     Active Substance: THIOTEPA
     Route: 065
  11. THIOTEPA [Suspect]
     Active Substance: THIOTEPA
     Indication: Allogenic stem cell transplantation
     Route: 065
  12. TREOSULFAN [Suspect]
     Active Substance: TREOSULFAN
     Indication: Allogenic stem cell transplantation
     Route: 065

REACTIONS (11)
  - Pneumonia [Unknown]
  - Cytomegalovirus infection [Recovered/Resolved]
  - Periorbital infection [Unknown]
  - COVID-19 [Unknown]
  - Cystitis haemorrhagic [Unknown]
  - Adenovirus infection [Unknown]
  - BK virus infection [Unknown]
  - Acute graft versus host disease [Unknown]
  - Viral upper respiratory tract infection [Unknown]
  - Renal impairment [Unknown]
  - Off label use [Unknown]
